FAERS Safety Report 7356604-X (Version None)
Quarter: 2011Q1

REPORT INFORMATION
  Report Type: 
  Country: None (occurrence: None)
  Receive Date: 20110316
  Receipt Date: 20110303
  Transmission Date: 20110831
  Serious: Yes (Other)
  Sender: FDA-Public Use
  Company Number: PHHY2011NL18147

PATIENT
  Sex: Female

DRUGS (1)
  1. ZOMETA [Suspect]
     Indication: BREAST CANCER
     Dosage: 4 MG  PER 28 DAYS
     Route: 042
     Dates: start: 20101229, end: 20110221

REACTIONS (3)
  - TERMINAL STATE [None]
  - DRUG INEFFECTIVE [None]
  - JOINT EFFUSION [None]
